FAERS Safety Report 4876895-4 (Version None)
Quarter: 2006Q2

REPORT INFORMATION
  Report Type: 
  Country: None (occurrence: None)
  Receive Date: 20060109
  Receipt Date: 20060109
  Transmission Date: 20061013
  Serious: Yes (Death)
  Sender: FDA-Public Use
  Company Number: None

PATIENT
  Age: 63 Year
  Sex: Female
  Weight: 94.2 kg

DRUGS (3)
  1. ANGIOMAX [Suspect]
     Indication: ANGIOPLASTY
     Dosage: 0.75 MG/KG IV -14 MG- IV BOLUS
     Route: 040
     Dates: start: 20051206, end: 20051206
  2. ANGIOMAX [Suspect]
     Indication: ANGIOPLASTY
     Dosage: 1.75 MG/KG /HR-33 MG- IV DRIP
     Route: 041
     Dates: start: 20051206, end: 20051206
  3. TAXUS EXPRESS2 MONORAIL 2.75 X 20MM / 3.0 X 8MM X2 STENT [Suspect]
     Dates: start: 20051206

REACTIONS (1)
  - POST PROCEDURAL COMPLICATION [None]
